FAERS Safety Report 14786215 (Version 4)
Quarter: 2019Q2

REPORT INFORMATION
  Report Type: Spontaneous
  Country: US (occurrence: US)
  Receive Date: 20180420
  Receipt Date: 20190528
  Transmission Date: 20190711
  Serious: Yes (Other)
  Sender: FDA-Public Use
  Company Number: US-PFIZER INC-2018165002

PATIENT
  Age: 66 Year
  Sex: Female

DRUGS (17)
  1. NEXIUM 24HR [Suspect]
     Active Substance: ESOMEPRAZOLE MAGNESIUM
     Dosage: 20 MG, 1X/DAY
     Route: 048
  2. FERROUS SULFATE. [Concomitant]
     Active Substance: FERROUS SULFATE
     Dosage: UNK
  3. PREVACID [Suspect]
     Active Substance: LANSOPRAZOLE
     Dosage: 40 MG, 1X/DAY
     Route: 065
  4. PROTONIX [Suspect]
     Active Substance: PANTOPRAZOLE SODIUM
     Dosage: UNK
     Route: 048
     Dates: start: 201101, end: 201212
  5. PRILOSEC [Suspect]
     Active Substance: OMEPRAZOLE MAGNESIUM
     Dosage: 40 MG, 1X/DAY
     Route: 048
  6. PHOSLO [Concomitant]
     Active Substance: CALCIUM ACETATE
     Dosage: UNK
  7. NEXIUM [Suspect]
     Active Substance: ESOMEPRAZOLE MAGNESIUM
     Dosage: 40 MG, 1X/DAY
     Route: 048
  8. PROCRIT [Concomitant]
     Active Substance: ERYTHROPOIETIN
     Dosage: UNK
  9. NEXIUM [Suspect]
     Active Substance: ESOMEPRAZOLE MAGNESIUM
     Dosage: UNK
     Route: 048
     Dates: start: 201101, end: 201212
  10. PREVACID [Suspect]
     Active Substance: LANSOPRAZOLE
     Dosage: UNK
     Route: 048
     Dates: start: 201101, end: 201212
  11. PRILOSEC [Suspect]
     Active Substance: OMEPRAZOLE MAGNESIUM
     Dosage: UNK
     Route: 048
     Dates: start: 201101, end: 201212
  12. PRILOSEC OTC [Suspect]
     Active Substance: OMEPRAZOLE MAGNESIUM
     Dosage: 20 MG, 1X/DAY
     Route: 048
     Dates: start: 201101, end: 201212
  13. LASIX [Concomitant]
     Active Substance: FUROSEMIDE
     Dosage: UNK
  14. NEXIUM 24HR [Suspect]
     Active Substance: ESOMEPRAZOLE MAGNESIUM
     Dosage: UNK
     Route: 048
  15. PREVACID 24 HR [Suspect]
     Active Substance: LANSOPRAZOLE
     Dosage: 15 MG, 1X/DAY
     Route: 065
     Dates: start: 201101, end: 201212
  16. DEXILANT [Suspect]
     Active Substance: DEXLANSOPRAZOLE
     Dosage: UNK
     Route: 048
     Dates: start: 201101, end: 201212
  17. VITAMIN D3 [Concomitant]
     Active Substance: CHOLECALCIFEROL
     Dosage: UNK

REACTIONS (5)
  - Renal failure [Unknown]
  - Chronic kidney disease [Unknown]
  - End stage renal disease [Unknown]
  - Nephrogenic anaemia [Unknown]
  - Renal impairment [Unknown]

NARRATIVE: CASE EVENT DATE: 20110325
